FAERS Safety Report 6472948-8 (Version None)
Quarter: 2009Q4

REPORT INFORMATION
  Report Type: 
  Country: None (occurrence: None)
  Receive Date: 20091203
  Receipt Date: 20081222
  Transmission Date: 20100525
  Serious: No
  Sender: FDA-Public Use
  Company Number: US-AMGEN-KDL325205

PATIENT
  Sex: Female

DRUGS (2)
  1. ENBREL [Suspect]
     Indication: RHEUMATOID ARTHRITIS
     Route: 058
     Dates: start: 20030106
  2. PLAQUENIL [Concomitant]

REACTIONS (5)
  - FATIGUE [None]
  - GINGIVAL DISORDER [None]
  - POST PROCEDURAL HAEMORRHAGE [None]
  - SINUSITIS [None]
  - TOOTH ABSCESS [None]
